FAERS Safety Report 8460114-6 (Version None)
Quarter: 2012Q2

REPORT INFORMATION
  Report Type: 
  Country: None (occurrence: None)
  Receive Date: 20120622
  Receipt Date: 20120615
  Transmission Date: 20120825
  Serious: Yes (Death)
  Sender: FDA-Public Use
  Company Number: US-ELI_LILLY_AND_COMPANY-US201205008798

PATIENT
  Age: 62 Year
  Sex: Male
  Weight: 129.71 kg

DRUGS (20)
  1. ASPIRIN [Concomitant]
     Dosage: 325 MG, QD
  2. NEULASTIM [Concomitant]
     Dosage: 6 MG, UNK
  3. DIGOXIN [Concomitant]
     Dosage: 0.25 MG, BID
  4. FISH OIL [Concomitant]
     Dosage: 1000 MG, BID
  5. GABAPENTIN [Concomitant]
     Dosage: 300 MG, BID
  6. LORTAB [Concomitant]
     Indication: PAIN
     Dosage: 5 MG, PRN
  7. XGEVA [Concomitant]
     Dosage: 120 MG, UNK
  8. DILTIAZEM HYDROCHOLORIDE [Concomitant]
     Dosage: 180 MG, QD
  9. ALLOPURINOL [Concomitant]
     Dosage: 300 MG, QD
  10. ALIMTA [Suspect]
     Indication: LUNG CARCINOMA CELL TYPE UNSPECIFIED STAGE IV
     Dosage: 1200 MG, UNK
     Route: 042
     Dates: start: 20120517
  11. SOTALOL HYDROCHLORIDE [Concomitant]
     Dosage: 120 MG, BID
  12. LORTAB [Concomitant]
     Dosage: 10 MG, PRN
  13. PRADAXA [Concomitant]
     Dosage: 150 MG, BID
  14. ZOFRAN [Concomitant]
     Indication: NAUSEA
     Dosage: 8 MG, PRN
     Route: 048
  15. LOSARTAN POTASSIUM AND HYDROCHLOROTHIAZIDE [Concomitant]
     Dosage: UNK, QD
  16. CARBOPLATIN [Concomitant]
     Indication: LUNG NEOPLASM MALIGNANT
     Dosage: 600 MG, UNK
  17. VITAMIN B-12 [Concomitant]
     Dosage: 1 UNK, UNK
     Route: 030
  18. DECADRON [Concomitant]
     Dosage: 4 MG, UNK
  19. FOLIC ACID [Concomitant]
     Dosage: 1 MG, QD
     Route: 048
  20. LASIX [Concomitant]
     Dosage: 40 MG, QD
     Route: 048

REACTIONS (2)
  - GASTROINTESTINAL HAEMORRHAGE [None]
  - RESPIRATORY FAILURE [None]
